FAERS Safety Report 7334903-5 (Version None)
Quarter: 2011Q1

REPORT INFORMATION
  Report Type: 
  Country: None (occurrence: None)
  Receive Date: 20110307
  Receipt Date: 20110301
  Transmission Date: 20110831
  Serious: No
  Sender: FDA-Public Use
  Company Number: JP-ROCHE-690709

PATIENT
  Sex: Female
  Weight: 57 kg

DRUGS (4)
  1. ACTEMRA [Suspect]
     Indication: RHEUMATOID ARTHRITIS
     Route: 041
     Dates: start: 20100113, end: 20100901
  2. RHEUMATREX [Concomitant]
     Route: 048
     Dates: start: 20070101
  3. PREDNISOLONE [Concomitant]
     Dosage: FORM: PERORAL AGENT
     Route: 048
     Dates: start: 20060101
  4. PROGRAF [Concomitant]
     Route: 048
     Dates: start: 20090101

REACTIONS (1)
  - PYREXIA [None]
